FAERS Safety Report 20906499 (Version 1)
Quarter: 2022Q2

REPORT INFORMATION
  Report Type: Spontaneous
  Country: US (occurrence: None)
  Receive Date: 20220602
  Receipt Date: 20220602
  Transmission Date: 20220721
  Serious: No
  Sender: FDA-Public Use
  Company Number: None

PATIENT
  Sex: Female
  Weight: 86.18 kg

DRUGS (7)
  1. IBRANCE [Suspect]
     Active Substance: PALBOCICLIB
     Indication: Breast cancer female
     Dosage: FREQUENCY : DAILY;?
     Route: 048
     Dates: start: 202201
  2. TYLENOL [Concomitant]
     Active Substance: ACETAMINOPHEN
  3. CALCIUM CARBONATE ANTACID [Concomitant]
  4. DEXAMETHASONE [Concomitant]
     Active Substance: DEXAMETHASONE
  5. EQL VITAMIN D3 [Concomitant]
  6. EXEMESTANCE [Concomitant]
  7. XARELTO [Concomitant]
     Active Substance: RIVAROXABAN

REACTIONS (2)
  - White blood cell disorder [None]
  - Therapy cessation [None]
